FAERS Safety Report 19149116 (Version 1)
Quarter: 2021Q2

REPORT INFORMATION
  Report Type: Spontaneous
  Country: CA (occurrence: CA)
  Receive Date: 20210416
  Receipt Date: 20210416
  Transmission Date: 20210717
  Serious: Yes (Life-Threatening, Hospitalization, Disabling, Other)
  Sender: FDA-Public Use
  Company Number: CA-TEVA-2021-CA-1901003

PATIENT
  Age: 56 Year
  Sex: Female
  Weight: 69 kg

DRUGS (25)
  1. IRBESARTAN. [Suspect]
     Active Substance: IRBESARTAN
     Dosage: 1 DOSAGE FORMS DAILY;
     Route: 065
  2. ALISKIREN [Suspect]
     Active Substance: ALISKIREN
     Dosage: 150 MILLIGRAM DAILY;
     Route: 048
  3. METFORMIN [Suspect]
     Active Substance: METFORMIN HYDROCHLORIDE
     Indication: PRODUCT USED FOR UNKNOWN INDICATION
     Route: 065
  4. ALISKIREN [Suspect]
     Active Substance: ALISKIREN
     Dosage: 150 MILLIGRAM DAILY;
     Route: 048
  5. ALISKIREN [Suspect]
     Active Substance: ALISKIREN
     Dosage: 150 MILLIGRAM DAILY;
     Route: 048
  6. VITAMIN B12 [Concomitant]
     Active Substance: CYANOCOBALAMIN
     Indication: PRODUCT USED FOR UNKNOWN INDICATION
     Route: 048
  7. AMLODIPINE [Suspect]
     Active Substance: AMLODIPINE BESYLATE
     Dosage: 1 DOSAGE FORMS DAILY;
     Route: 048
  8. ALISKIREN [Suspect]
     Active Substance: ALISKIREN
     Indication: MICROALBUMINURIA
     Route: 065
  9. ALISKIREN [Suspect]
     Active Substance: ALISKIREN
     Dosage: 150 MILLIGRAM DAILY;
     Route: 048
  10. ALISKIREN [Suspect]
     Active Substance: ALISKIREN
     Route: 065
  11. ESOMEPRAZOLE. [Suspect]
     Active Substance: ESOMEPRAZOLE MAGNESIUM
     Indication: PRODUCT USED FOR UNKNOWN INDICATION
     Dosage: 1 DOSAGE FORMS DAILY;
     Route: 048
  12. ALISKIREN [Suspect]
     Active Substance: ALISKIREN
     Indication: HYPERTENSION
     Route: 065
  13. METFORMIN [Suspect]
     Active Substance: METFORMIN HYDROCHLORIDE
     Dosage: 2550 MILLIGRAM DAILY;
     Route: 048
  14. JANUVIA [Suspect]
     Active Substance: SITAGLIPTIN PHOSPHATE
     Indication: PRODUCT USED FOR UNKNOWN INDICATION
     Dosage: 1 DOSAGE FORMS DAILY;
     Route: 048
  15. ASPIRIN. [Suspect]
     Active Substance: ASPIRIN
     Route: 065
  16. ESOMEPRAZOLE. [Suspect]
     Active Substance: ESOMEPRAZOLE MAGNESIUM
     Dosage: 40 MILLIGRAM DAILY;
     Route: 048
  17. ALISKIREN [Suspect]
     Active Substance: ALISKIREN
     Dosage: 150 MILLIGRAM DAILY;
     Route: 048
  18. IRBESARTAN. [Suspect]
     Active Substance: IRBESARTAN
     Indication: PRODUCT USED FOR UNKNOWN INDICATION
     Dosage: 1 DOSAGE FORMS DAILY;
     Route: 048
  19. IRBESARTAN. [Suspect]
     Active Substance: IRBESARTAN
     Dosage: 1 DOSAGE FORMS DAILY;
     Route: 048
  20. ALISKIREN [Suspect]
     Active Substance: ALISKIREN
     Route: 065
  21. AMLODIPINE [Suspect]
     Active Substance: AMLODIPINE BESYLATE
     Indication: PRODUCT USED FOR UNKNOWN INDICATION
     Dosage: 1 DOSAGE FORMS DAILY;
     Route: 048
  22. ASPIRIN. [Suspect]
     Active Substance: ASPIRIN
     Indication: PRODUCT USED FOR UNKNOWN INDICATION
     Dosage: 1 DOSAGE FORMS DAILY;
     Route: 048
  23. ALISKIREN [Suspect]
     Active Substance: ALISKIREN
     Indication: OFF LABEL USE
     Route: 065
  24. ALISKIREN [Suspect]
     Active Substance: ALISKIREN
     Dosage: 150 MILLIGRAM DAILY;
     Route: 048
  25. ALISKIREN [Suspect]
     Active Substance: ALISKIREN
     Route: 065

REACTIONS (22)
  - Nausea [Recovered/Resolved]
  - Fall [Recovered/Resolved]
  - Neurologic neglect syndrome [Recovered/Resolved]
  - Sensory loss [Recovered/Resolved]
  - Dysarthria [Recovered/Resolved]
  - Dysphagia [Recovered/Resolved]
  - Muscle spasticity [Recovered/Resolved]
  - Personality disorder [Recovered/Resolved]
  - Carotid artery thrombosis [Recovered/Resolved]
  - Cerebrovascular accident [Recovered/Resolved]
  - Confusional state [Recovered/Resolved]
  - Eating disorder [Recovered/Resolved]
  - Affect lability [Recovered/Resolved]
  - Anxiety [Recovered/Resolved]
  - Muscular weakness [Recovered/Resolved]
  - Asthenia [Recovered/Resolved]
  - Hemiparesis [Recovered/Resolved]
  - Adjustment disorder [Recovered/Resolved]
  - Aphasia [Recovered/Resolved]
  - Coordination abnormal [Recovered/Resolved]
  - Hemiplegia [Recovered/Resolved]
  - Motor dysfunction [Recovered/Resolved]
